FAERS Safety Report 15785905 (Version 3)
Quarter: 2019Q1

REPORT INFORMATION
  Report Type: Spontaneous
  Country: US (occurrence: US)
  Receive Date: 20190103
  Receipt Date: 20190320
  Transmission Date: 20190417
  Serious: No
  Sender: FDA-Public Use
  Company Number: US-ASTRAZENECA-2018SF62613

PATIENT
  Age: 903 Month
  Sex: Female
  Weight: 120.2 kg

DRUGS (2)
  1. SYMBICORT [Suspect]
     Active Substance: BUDESONIDE\FORMOTEROL FUMARATE DIHYDRATE
     Dosage: 160/4.5 MCG, TWO INHALATIONS, TWICE DAILY
     Route: 055
     Dates: start: 2018
  2. OXYGEN. [Concomitant]
     Active Substance: OXYGEN
     Dosage: 3.0L CONTINUOUSLY
     Route: 045
     Dates: start: 201709

REACTIONS (10)
  - Confusional state [Not Recovered/Not Resolved]
  - Fatigue [Unknown]
  - Stress [Not Recovered/Not Resolved]
  - Incorrect dose administered by device [Not Recovered/Not Resolved]
  - Depressed mood [Unknown]
  - Device leakage [Unknown]
  - Hypokinesia [Unknown]
  - Intentional product misuse [Unknown]
  - Muscular weakness [Unknown]
  - Bronchitis [Not Recovered/Not Resolved]

NARRATIVE: CASE EVENT DATE: 201810
